FAERS Safety Report 8763817 (Version 1)
Quarter: 2012Q4

REPORT INFORMATION
  Report Type: Spontaneous
  Country: US (occurrence: None)
  Receive Date: 20120831
  Receipt Date: 20120831
  Transmission Date: 20130627
  Serious: Yes (Life-Threatening, Hospitalization)
  Sender: FDA-Public Use
  Company Number: None

PATIENT
  Age: 24 Year
  Sex: Female

DRUGS (1)
  1. OPANA [Suspect]
     Dosage: abuse suspected
     Route: 042
     Dates: start: 20120201, end: 20120707

REACTIONS (6)
  - Thrombotic thrombocytopenic purpura [None]
  - Microangiopathic haemolytic anaemia [None]
  - Renal failure acute [None]
  - Haemodialysis [None]
  - Drug screen positive [None]
  - Wrong technique in drug usage process [None]
